FAERS Safety Report 7503609-1 (Version None)
Quarter: 2011Q2

REPORT INFORMATION
  Report Type: 
  Country: None (occurrence: None)
  Receive Date: 20110525
  Receipt Date: 20110518
  Transmission Date: 20111010
  Serious: Yes (Other)
  Sender: FDA-Public Use
  Company Number: JP-SANOFI-AVENTIS-2011SA003847

PATIENT
  Age: 75 Year
  Sex: Male

DRUGS (5)
  1. LEUCOVORIN CALCIUM [Concomitant]
     Indication: RECTAL CANCER
     Dosage: TOTAL 12 CYCLES
     Route: 041
     Dates: start: 20081001, end: 20100201
  2. AVASTIN [Concomitant]
     Indication: RECTAL CANCER
     Route: 041
     Dates: start: 20100201, end: 20100201
  3. FLUOROURACIL [Suspect]
     Indication: RECTAL CANCER
     Dosage: BOLUS ON DAY 1 AND CONTINOUS INFUSION ON DAY 2, FORM : BOLUS, TOTAL 12 CYCLES
     Route: 040
     Dates: start: 20081001, end: 20100201
  4. FLUOROURACIL [Suspect]
     Dosage: BOLUS ON DAY 1 AND CONTINOUS INFUSION ON DAY 2, TOTAL 12 CYCLES
     Route: 041
     Dates: start: 20081001, end: 20100201
  5. OXALIPLATIN [Suspect]
     Indication: RECTAL CANCER
     Dosage: TOTAL 12 CYCLES
     Route: 041
     Dates: start: 20081001, end: 20100201

REACTIONS (2)
  - HYPERAMMONAEMIA [None]
  - HEPATIC ENCEPHALOPATHY [None]
